FAERS Safety Report 5512872-8 (Version None)
Quarter: 2007Q4

REPORT INFORMATION
  Report Type: 
  Country: None (occurrence: None)
  Receive Date: 20071108
  Receipt Date: 20071108
  Transmission Date: 20080405
  Serious: Yes (Other)
  Sender: FDA-Public Use
  Company Number: None

PATIENT
  Age: 31 Year
  Sex: Female
  Weight: 113.3993 kg

DRUGS (1)
  1. CLONODINE PATCHES [Suspect]
     Indication: PROCEDURAL PAIN
     Dosage: ONE PATCH ONE EVERY WEEK SQ
     Route: 058

REACTIONS (3)
  - DRUG PRESCRIBING ERROR [None]
  - HEADACHE [None]
  - HYPERTENSION [None]
